APPROVED DRUG PRODUCT: AMLODIPINE BESYLATE AND VALSARTAN
Active Ingredient: AMLODIPINE BESYLATE; VALSARTAN
Strength: EQ 5MG BASE;160MG
Dosage Form/Route: TABLET;ORAL
Application: A090483 | Product #001 | TE Code: AB
Applicant: MYLAN PHARMACEUTICALS INC
Approved: Mar 30, 2015 | RLD: No | RS: No | Type: RX